FAERS Safety Report 26138291 (Version 1)
Quarter: 2025Q4

REPORT INFORMATION
  Report Type: Spontaneous
  Country: US (occurrence: US)
  Receive Date: 20251210
  Receipt Date: 20251210
  Transmission Date: 20260117
  Serious: No
  Sender: AUROBINDO
  Company Number: US-AUROBINDO-AUR-APL-2025-046266

PATIENT
  Sex: Female

DRUGS (3)
  1. FINASTERIDE [Suspect]
     Active Substance: FINASTERIDE
     Indication: Alopecia
     Dosage: 5 MILLIGRAM, DAILY
     Route: 065
  2. PROSCAR [Concomitant]
     Active Substance: FINASTERIDE
     Indication: Alopecia
     Dosage: 1 DOSAGE FORM, DAILY
     Route: 065
  3. PROPECIA [Concomitant]
     Active Substance: FINASTERIDE
     Indication: Alopecia
     Dosage: 1 DOSAGE FORM, DAILY
     Route: 065

REACTIONS (1)
  - Drug ineffective [Unknown]
